FAERS Safety Report 5840147-6 (Version None)
Quarter: 2008Q3

REPORT INFORMATION
  Report Type: 
  Country: None (occurrence: None)
  Receive Date: 20080807
  Receipt Date: 20080807
  Transmission Date: 20090109
  Serious: No
  Sender: FDA-Public Use
  Company Number: None

PATIENT
  Age: 77 Year
  Sex: Female
  Weight: 49.8957 kg

DRUGS (2)
  1. FUROSEMIDE [Suspect]
     Indication: BLOOD PRESSURE
     Dates: start: 20070101
  2. ENALAPRIL 5 MG [Suspect]
     Indication: BLOOD PRESSURE
     Dates: start: 20060101

REACTIONS (6)
  - ASTHENIA [None]
  - DYSPNOEA [None]
  - FATIGUE [None]
  - HEART RATE INCREASED [None]
  - HEART RATE IRREGULAR [None]
  - MEMORY IMPAIRMENT [None]
